FAERS Safety Report 9870909 (Version 2)
Quarter: 2014Q1

REPORT INFORMATION
  Report Type: Report from Study
  Country: CA (occurrence: CA)
  Receive Date: 20140205
  Receipt Date: 20140313
  Transmission Date: 20141002
  Serious: Yes (Life-Threatening, Hospitalization)
  Sender: FDA-Public Use
  Company Number: PHHY2014CA014141

PATIENT
  Sex: Male

DRUGS (2)
  1. CLOZARIL [Suspect]
     Dates: start: 20110712
  2. CLOZARIL [Suspect]
     Dosage: UNK UKN, UNK

REACTIONS (1)
  - Suicidal ideation [Unknown]
